FAERS Safety Report 17327154 (Version 1)
Quarter: 2020Q1

REPORT INFORMATION
  Report Type: Other
  Country: MX (occurrence: MX)
  Receive Date: 20200127
  Receipt Date: 20200127
  Transmission Date: 20200409
  Serious: Yes (Other)
  Sender: FDA-Public Use
  Company Number: MX-EMD SERONO-9142381

PATIENT
  Age: 30 Year
  Sex: Female

DRUGS (1)
  1. CLADRIBINE. [Suspect]
     Active Substance: CLADRIBINE
     Indication: RELAPSING-REMITTING MULTIPLE SCLEROSIS
     Dosage: 1.75 MG/KG/YEAR
     Route: 048

REACTIONS (1)
  - Multiple sclerosis [Unknown]
